FAERS Safety Report 8427275-6 (Version None)
Quarter: 2012Q2

REPORT INFORMATION
  Report Type: 
  Country: None (occurrence: None)
  Receive Date: 20120611
  Receipt Date: 20120531
  Transmission Date: 20120825
  Serious: Yes (Death)
  Sender: FDA-Public Use
  Company Number: JP-GLAXOSMITHKLINE-B0704676A

PATIENT
  Sex: Female
  Weight: 41 kg

DRUGS (12)
  1. PURSENNID [Concomitant]
     Dosage: 12MG PER DAY
     Route: 048
  2. PROMACTA [Suspect]
     Indication: IDIOPATHIC THROMBOCYTOPENIC PURPURA
     Dosage: 12.5MG PER DAY
     Route: 048
     Dates: start: 20110202, end: 20110304
  3. VESICARE [Concomitant]
     Dosage: 5MG PER DAY
     Route: 048
     Dates: start: 20110212, end: 20110219
  4. BACTRIM [Concomitant]
     Indication: ANTIFUNGAL PROPHYLAXIS
     Dosage: 1IUAX TWICE PER DAY
     Route: 048
     Dates: start: 20110215, end: 20110225
  5. CLARITHROMYCIN [Concomitant]
     Dosage: 400MG PER DAY
     Route: 048
     Dates: start: 20110202, end: 20110202
  6. PREDNISOLONE [Concomitant]
     Dosage: 20MG PER DAY
     Route: 048
     Dates: start: 20110218
  7. LANSOPRAZOLE [Concomitant]
     Indication: PROPHYLAXIS AGAINST GASTROINTESTINAL ULCER
     Dosage: 30MG PER DAY
     Route: 048
  8. MAGNESIUM HYDROXIDE TAB [Concomitant]
     Dosage: 3.6MG PER DAY
     Route: 048
     Dates: start: 20110216, end: 20110219
  9. URITOS [Concomitant]
     Dosage: .1MG PER DAY
     Route: 048
     Dates: end: 20110211
  10. LOXONIN [Concomitant]
     Dosage: 60MG PER DAY
     Route: 048
  11. DANAZOL [Concomitant]
     Indication: IDIOPATHIC THROMBOCYTOPENIC PURPURA
     Dosage: 300MG PER DAY
     Route: 048
     Dates: start: 20110214, end: 20110219
  12. PREDNISOLONE [Concomitant]
     Indication: IDIOPATHIC THROMBOCYTOPENIC PURPURA
     Dosage: 30MG PER DAY
     Route: 048
     Dates: start: 20110128, end: 20110217

REACTIONS (13)
  - ATELECTASIS [None]
  - RESPIRATORY DISORDER [None]
  - HEPATIC FUNCTION ABNORMAL [None]
  - LIVER DISORDER [None]
  - PLEURAL EFFUSION [None]
  - SUBDURAL HAEMATOMA [None]
  - BLOOD LACTATE DEHYDROGENASE INCREASED [None]
  - BLOOD ALKALINE PHOSPHATASE INCREASED [None]
  - POOR PERIPHERAL CIRCULATION [None]
  - PYREXIA [None]
  - ASCITES [None]
  - PLATELET COUNT DECREASED [None]
  - ASPARTATE AMINOTRANSFERASE INCREASED [None]
